FAERS Safety Report 5575159-3 (Version None)
Quarter: 2007Q4

REPORT INFORMATION
  Report Type: 
  Country: None (occurrence: None)
  Receive Date: 20071130
  Receipt Date: 20070801
  Transmission Date: 20080405
  Serious: No
  Sender: FDA-Public Use
  Company Number: US200708000503

PATIENT
  Age: 44 Year
  Sex: Female
  Weight: 124.7 kg

DRUGS (4)
  1. BYETTA [Suspect]
     Indication: TYPE 2 DIABETES MELLITUS
     Dosage: 5 UG, 2/D, SUBCUTANEOUS
     Route: 058
     Dates: start: 20070725
  2. AVANDAMET [Concomitant]
  3. METFORMIN HCL [Concomitant]
  4. .. [Concomitant]

REACTIONS (3)
  - ABDOMINAL PAIN LOWER [None]
  - BACK PAIN [None]
  - HEADACHE [None]
